FAERS Safety Report 16205106 (Version 1)
Quarter: 2019Q2

REPORT INFORMATION
  Report Type: Spontaneous
  Country: US (occurrence: US)
  Receive Date: 20190416
  Receipt Date: 20190416
  Transmission Date: 20190711
  Serious: Yes (Other)
  Sender: FDA-Public Use
  Company Number: US-009507513-1904USA004119

PATIENT
  Age: 15 Year
  Sex: Male

DRUGS (32)
  1. PAXIL [Suspect]
     Active Substance: PAROXETINE HYDROCHLORIDE
     Dosage: UNK
  2. CYMBALTA [Suspect]
     Active Substance: DULOXETINE HYDROCHLORIDE
     Indication: DEPRESSION
  3. ELAVIL [Suspect]
     Active Substance: AMITRIPTYLINE HYDROCHLORIDE
     Dosage: UNK
  4. SOMA [Suspect]
     Active Substance: CARISOPRODOL
     Dosage: UNK
  5. REMERON [Suspect]
     Active Substance: MIRTAZAPINE
     Dosage: UNK
     Dates: start: 2007
  6. LEXAPRO [Suspect]
     Active Substance: ESCITALOPRAM OXALATE
     Dosage: UNK
  7. TRAZODONE HYDROCHLORIDE. [Suspect]
     Active Substance: TRAZODONE HYDROCHLORIDE
     Indication: PAIN
     Dosage: UNK
  8. PAMELOR [Suspect]
     Active Substance: NORTRIPTYLINE HYDROCHLORIDE
     Dosage: UNK
  9. TEGRETOL [Suspect]
     Active Substance: CARBAMAZEPINE
     Dosage: UNK
  10. VALIUM [Suspect]
     Active Substance: DIAZEPAM
     Indication: PAIN
     Dosage: UNK
  11. EFFEXOR XR [Suspect]
     Active Substance: VENLAFAXINE HYDROCHLORIDE
     Dosage: UNK
  12. BUSPAR [Suspect]
     Active Substance: BUSPIRONE HYDROCHLORIDE
     Dosage: UNK
  13. SKELAXIN [Suspect]
     Active Substance: METAXALONE
     Dosage: UNK
  14. LITHIUM. [Suspect]
     Active Substance: LITHIUM
     Dosage: UNK
     Dates: start: 2007
  15. RITALIN [Suspect]
     Active Substance: METHYLPHENIDATE HYDROCHLORIDE
     Indication: HEADACHE
     Dosage: UNK
  16. ZOLOFT [Suspect]
     Active Substance: SERTRALINE HYDROCHLORIDE
     Dosage: UNK
  17. DEPAKOTE [Suspect]
     Active Substance: DIVALPROEX SODIUM
     Indication: HEADACHE
     Dosage: UNK
  18. RISPERDAL [Suspect]
     Active Substance: RISPERIDONE
     Dosage: UNK
     Dates: start: 2007
  19. LAMICTAL [Suspect]
     Active Substance: LAMOTRIGINE
     Dosage: UNK
  20. VALIUM [Suspect]
     Active Substance: DIAZEPAM
     Indication: HYPOTONIA
  21. KLONOPIN [Suspect]
     Active Substance: CLONAZEPAM
     Dosage: UNK
  22. GEODON [Suspect]
     Active Substance: ZIPRASIDONE HYDROCHLORIDE\ZIPRASIDONE MESYLATE
     Dosage: UNK
  23. ZOMIG [Suspect]
     Active Substance: ZOLMITRIPTAN
     Indication: HEADACHE
     Dosage: UNK
  24. WELLBUTRIN [Suspect]
     Active Substance: BUPROPION HYDROCHLORIDE
     Dosage: UNK
  25. EFFEXOR [Suspect]
     Active Substance: VENLAFAXINE HYDROCHLORIDE
     Dosage: 37.5 MG, UNK
  26. IMITREX [Suspect]
     Active Substance: SUMATRIPTAN SUCCINATE
     Indication: HEADACHE
     Dosage: UNK
  27. SEROQUEL [Suspect]
     Active Substance: QUETIAPINE FUMARATE
     Dosage: UNK
     Dates: start: 2007
  28. ZYPREXA [Suspect]
     Active Substance: OLANZAPINE
     Dosage: UNK
  29. TRAZODONE HYDROCHLORIDE. [Suspect]
     Active Substance: TRAZODONE HYDROCHLORIDE
     Indication: DEPRESSION
     Dosage: UNK
  30. CYMBALTA [Suspect]
     Active Substance: DULOXETINE HYDROCHLORIDE
     Indication: PAIN
     Dosage: UNK
  31. CELEBREX [Suspect]
     Active Substance: CELECOXIB
     Dosage: UNK
  32. VALIUM [Suspect]
     Active Substance: DIAZEPAM
     Indication: ANXIETY
     Dosage: UNK

REACTIONS (23)
  - Condition aggravated [Unknown]
  - Insomnia [Unknown]
  - Mood swings [Unknown]
  - Disturbance in attention [Unknown]
  - Breast enlargement [Unknown]
  - Rectal haemorrhage [Unknown]
  - Fatigue [Unknown]
  - Memory impairment [Unknown]
  - Rash [Unknown]
  - Ear disorder [Unknown]
  - Aggression [Unknown]
  - Therapeutic product effect increased [Unknown]
  - Suicidal ideation [Unknown]
  - Drug ineffective [Unknown]
  - Weight increased [Unknown]
  - Muscle spasms [Unknown]
  - Dependence [Unknown]
  - Deafness [Unknown]
  - Gastric ulcer [Unknown]
  - Anger [Unknown]
  - Constipation [Unknown]
  - Erection increased [Unknown]
  - Influenza like illness [Unknown]
